FAERS Safety Report 5513907-9 (Version None)
Quarter: 2007Q4

REPORT INFORMATION
  Report Type: 
  Country: None (occurrence: None)
  Receive Date: 20071113
  Receipt Date: 20071102
  Transmission Date: 20080405
  Serious: Yes (Death)
  Sender: FDA-Public Use
  Company Number: US-TYCO HEALTHCARE/MALLINCKRODT-T200701280

PATIENT

DRUGS (3)
  1. METHADOSE [Suspect]
     Dosage: UNK, UNK
     Dates: start: 20070421
  2. EFFEXOR [Concomitant]
     Indication: ANXIETY
     Dosage: 225 MG, QD
     Route: 048
     Dates: start: 20050101
  3. XANAX [Concomitant]
     Indication: ANXIETY
     Dosage: 1 MG, BID, PRN
     Route: 048
     Dates: start: 20050101

REACTIONS (2)
  - DRUG DIVERSION [None]
  - DRUG TOXICITY [None]
